FAERS Safety Report 8110448-X (Version None)
Quarter: 2012Q1

REPORT INFORMATION
  Report Type: 
  Country: None (occurrence: None)
  Receive Date: 20120202
  Receipt Date: 20120124
  Transmission Date: 20120608
  Serious: Yes (Hospitalization, Disabling)
  Sender: FDA-Public Use
  Company Number: GB-TEVA-317202ISR

PATIENT
  Age: 77 Year
  Sex: Female

DRUGS (10)
  1. LORAZEPAM [Concomitant]
     Indication: DEPRESSION
     Dosage: MAXIMUM 2MG IN 24 HOURS.
     Route: 048
     Dates: start: 20110302
  2. CALCIUM CARBONATE [Concomitant]
     Indication: OSTEOPOROSIS
     Dosage: 2 DOSAGE FORMS; ONE TABLET TWICE A DAY.
     Route: 048
     Dates: start: 20111209
  3. ACETAMINOPHEN [Concomitant]
     Indication: PAIN
     Dosage: 500MG-1G FOUR TIMES A DAY, AS NECESSARY.
     Route: 048
     Dates: start: 20110302
  4. POLYETHYLENE GLYCOL [Concomitant]
     Indication: CONSTIPATION
     Dosage: 1-2 DAILY AS NECESSARY.
     Route: 048
     Dates: start: 20111219
  5. FERROUS SULFATE TAB [Concomitant]
     Indication: ANAEMIA
     Dosage: 200 MILLIGRAM; ONE IN THE MORNING.
     Route: 048
     Dates: start: 20110302
  6. GALANTAMINE HYDROBROMIDE [Concomitant]
     Indication: DEMENTIA ALZHEIMER'S TYPE
     Dosage: 24 MILLIGRAM; IN THE MORNING.
     Route: 048
     Dates: start: 20110302
  7. CITALOPRAM HYDROBROMIDE [Concomitant]
     Indication: DEPRESSION
     Dosage: 20 MILLIGRAM;
     Route: 048
     Dates: start: 20111201, end: 20111222
  8. ALENDRONIC ACID [Concomitant]
     Indication: OSTEOPOROSIS
     Dosage: 107.1429 MILLIGRAM;
     Route: 048
     Dates: start: 20111209
  9. CODEINE SULFATE [Concomitant]
     Indication: PAIN
     Dosage: 30-60MG FOUR TIMES A DAY AS NECESSARY.
     Route: 048
     Dates: start: 20111219
  10. TRAZODONE HCL [Suspect]
     Indication: DEPRESSION
     Route: 048
     Dates: start: 20111223, end: 20111223

REACTIONS (8)
  - SWOLLEN TONGUE [None]
  - LIP BLISTER [None]
  - LIP SWELLING [None]
  - LIP HAEMORRHAGE [None]
  - CHAPPED LIPS [None]
  - LIP PAIN [None]
  - TONGUE EXFOLIATION [None]
  - HYPERSENSITIVITY [None]
